FAERS Safety Report 14890286 (Version 2)
Quarter: 2018Q2

REPORT INFORMATION
  Report Type: Spontaneous
  Country: US (occurrence: US)
  Receive Date: 20180514
  Receipt Date: 20180516
  Transmission Date: 20180711
  Serious: No
  Sender: FDA-Public Use
  Company Number: US-PFIZER INC-2018193952

PATIENT
  Age: 75 Year
  Sex: Female
  Weight: 62 kg

DRUGS (6)
  1. IBRANCE [Suspect]
     Active Substance: PALBOCICLIB
     Indication: BREAST CANCER METASTATIC
     Dosage: 125 MG, DAILY
     Route: 048
  2. XGEVA [Suspect]
     Active Substance: DENOSUMAB
     Dosage: 1 MG, MONTHLY
     Dates: end: 2017
  3. FASLODEX [Concomitant]
     Active Substance: FULVESTRANT
     Indication: HORMONE SUPPRESSION THERAPY
     Dosage: 1 DF, MONTHLY, ^A SHOT IN EACH HIP ONCE A MONTH^
  4. AFLIBERCEPT [Concomitant]
     Active Substance: AFLIBERCEPT
     Indication: MACULAR DEGENERATION
     Dosage: 1 MG, UNK, ^INJECTION TO LEFT EYE EVERY 2 MONTHS^
     Route: 031
  5. LEVOTHYROXINE. [Concomitant]
     Active Substance: LEVOTHYROXINE
     Dosage: 75 UG, 1X/DAY
     Route: 048
  6. IBRANCE [Suspect]
     Active Substance: PALBOCICLIB
     Dosage: 100 MG, DAILY
     Route: 048
     Dates: start: 20180501

REACTIONS (6)
  - Bone loss [Recovering/Resolving]
  - Weight decreased [Recovered/Resolved]
  - Oral infection [Recovered/Resolved]
  - Stomatitis [Unknown]
  - Decreased appetite [Unknown]
  - Fatigue [Recovered/Resolved]

NARRATIVE: CASE EVENT DATE: 2017
